FAERS Safety Report 21925565 (Version 1)
Quarter: 2023Q1

REPORT INFORMATION
  Report Type: Spontaneous
  Country: FR (occurrence: FR)
  Receive Date: 20230130
  Receipt Date: 20230130
  Transmission Date: 20230417
  Serious: Yes (Other)
  Sender: FDA-Public Use
  Company Number: None

PATIENT

DRUGS (2)
  1. BENLYSTA [Suspect]
     Active Substance: BELIMUMAB
     Indication: Lupus-like syndrome
     Dosage: 200 MG, WE
     Route: 058
     Dates: start: 202001, end: 20200303
  2. METHOTREXATE [Concomitant]
     Active Substance: METHOTREXATE
     Indication: Lupus-like syndrome
     Dosage: 15 MG, WE
     Route: 048
     Dates: start: 201708

REACTIONS (1)
  - Neuropathy peripheral [Recovered/Resolved]

NARRATIVE: CASE EVENT DATE: 20200101
